FAERS Safety Report 8340260-8 (Version None)
Quarter: 2012Q2

REPORT INFORMATION
  Report Type: 
  Country: None (occurrence: None)
  Receive Date: 20120507
  Receipt Date: 20120430
  Transmission Date: 20120825
  Serious: Yes (Hospitalization, Other)
  Sender: FDA-Public Use
  Company Number: PHEH2012US001962

PATIENT
  Sex: Female

DRUGS (26)
  1. LISINOPRIL [Concomitant]
     Indication: BLOOD PRESSURE
     Dosage: 1 DF, QD
     Dates: start: 20101208
  2. AMANTADINE HCL [Concomitant]
     Dosage: 1 DF, QD
     Route: 048
     Dates: start: 20111108
  3. CYANOCOBALAMIN [Concomitant]
     Dosage: 1 ML, QD
     Route: 030
     Dates: start: 20101208
  4. MAGNESIUM [Concomitant]
     Indication: SHORT-BOWEL SYNDROME
     Route: 042
  5. NUVIGIL [Concomitant]
     Dosage: 150 MG, QD
     Route: 048
     Dates: start: 20111101
  6. DILTIAZEM [Concomitant]
     Indication: BLOOD PRESSURE
     Dosage: 1 DF, QD
  7. OXYBUTYNIN [Concomitant]
     Dosage: 5 MG, QD
     Route: 048
  8. COUMADIN [Concomitant]
     Dosage: 5 MG, QD
     Route: 048
     Dates: start: 20120115
  9. COUMADIN [Concomitant]
     Dosage: 4 MG, BID
     Route: 048
     Dates: start: 20120117
  10. ACETAMINOPHEN [Concomitant]
     Dosage: 650 MG, PRN
  11. TRICOR [Concomitant]
     Indication: BLOOD CHOLESTEROL
     Dosage: 1 DF BEFORE MEALS IN AM, QD
     Route: 048
     Dates: start: 20101208
  12. POTASSIUM CHLORIDE [Concomitant]
     Indication: SHORT-BOWEL SYNDROME
  13. ALBUTEROL SULFATE [Concomitant]
     Indication: WHEEZING
     Dosage: 1UNIT DOSE 4-6 HOURS AS NEEDED , UNK
     Dates: start: 20101208
  14. VAGIFEM [Concomitant]
  15. SEROQUEL [Concomitant]
     Dosage: 0.5 DF, QHS
     Route: 048
     Dates: start: 20101208
  16. ESTRADIOL [Concomitant]
     Dosage: 1.5 DF, QD
     Route: 048
  17. COMBIVENT [Concomitant]
     Dosage: 2 PUFFS FOUR TIMES DAILY, QID
  18. OMEPRAZOLE [Concomitant]
     Dosage: 20 MG, QD
     Route: 048
     Dates: start: 20110818
  19. OXYBUTYNIN [Concomitant]
     Dosage: 10 MG, QD
     Route: 048
  20. COUMADIN [Concomitant]
     Dosage: 7.5 MG, QD
     Route: 048
     Dates: start: 20120116
  21. BOOST [Concomitant]
  22. EPIPEN [Concomitant]
     Indication: HYPERSENSITIVITY
     Dosage: 0.3 ML, ONCE IMMEDIATELY
  23. PROMETHAZINE [Concomitant]
     Indication: NAUSEA
     Dosage: 1 DF, Q6H
     Route: 048
  24. GILENYA [Suspect]
     Indication: MULTIPLE SCLEROSIS
     Dosage: 0.5 MG, QD
     Route: 048
     Dates: start: 20111215
  25. ADVAIR DISKUS 100/50 [Concomitant]
     Dosage: 1 PUFFS TWICE DAILY, BID
     Dates: start: 20101208
  26. LOPERAMIDE [Concomitant]
     Indication: BOWEL MOVEMENT IRREGULARITY
     Dosage: 1 TAB INITIALLY FOLLOWED BY 2 TAB
     Dates: start: 20101208

REACTIONS (6)
  - HYPERHIDROSIS [None]
  - PULMONARY EMBOLISM [None]
  - DYSPNOEA [None]
  - CHEST PAIN [None]
  - PALPITATIONS [None]
  - CHEST DISCOMFORT [None]
